FAERS Safety Report 25333368 (Version 1)
Quarter: 2025Q2

REPORT INFORMATION
  Report Type: Spontaneous
  Country: US (occurrence: US)
  Receive Date: 20250520
  Receipt Date: 20250520
  Transmission Date: 20250716
  Serious: No
  Sender: ALEXION PHARMACEUTICALS
  Company Number: US-AstraZeneca-CH-00870086A

PATIENT
  Age: 76 Year
  Weight: 81.646 kg

DRUGS (1)
  1. FARXIGA [Suspect]
     Active Substance: DAPAGLIFLOZIN PROPANEDIOL
     Indication: Heart rate

REACTIONS (2)
  - Genital ulceration [Recovered/Resolved with Sequelae]
  - Pruritus genital [Unknown]
